FAERS Safety Report 5071988-3 (Version None)
Quarter: 2006Q3

REPORT INFORMATION
  Report Type: 
  Country: None (occurrence: None)
  Receive Date: 20060801
  Receipt Date: 20060725
  Transmission Date: 20061208
  Serious: Yes (Hospitalization)
  Sender: FDA-Public Use
  Company Number: 2006-118

PATIENT
  Sex: Male
  Weight: 95.2554 kg

DRUGS (1)
  1. CYCLOBENZAPRINE HCL [Suspect]
     Indication: ANTIINFLAMMATORY THERAPY
     Dosage: 1 TABLET TWICE A DAY
     Dates: start: 20060606, end: 20060614

REACTIONS (6)
  - FACIAL PALSY [None]
  - HEART RATE INCREASED [None]
  - HYPERSENSITIVITY [None]
  - HYPERTENSION [None]
  - HYPOAESTHESIA [None]
  - SENSORY LOSS [None]
